FAERS Safety Report 6465556-6 (Version None)
Quarter: 2009Q4

REPORT INFORMATION
  Report Type: 
  Country: None (occurrence: None)
  Receive Date: 20091119
  Receipt Date: 20090924
  Transmission Date: 20100525
  Serious: No
  Sender: FDA-Public Use
  Company Number: WAES 0909USA04002

PATIENT
  Sex: Female

DRUGS (2)
  1. JANUVIA [Suspect]
     Dosage: QID/PO; 100 MG/PO
     Route: 048
     Dates: start: 20090827, end: 20090101
  2. JANUVIA [Suspect]
     Dosage: QID/PO; 100 MG/PO
     Route: 048
     Dates: start: 20090101

REACTIONS (2)
  - BLOOD GLUCOSE FLUCTUATION [None]
  - WRONG TECHNIQUE IN DRUG USAGE PROCESS [None]
